FAERS Safety Report 22194149 (Version 1)
Quarter: 2023Q2

REPORT INFORMATION
  Report Type: Spontaneous
  Country: US (occurrence: None)
  Receive Date: 20230411
  Receipt Date: 20230411
  Transmission Date: 20230722
  Serious: No
  Sender: FDA-Public Use
  Company Number: 2023A061092

PATIENT
  Sex: Female
  Weight: 56.7 kg

DRUGS (3)
  1. CRESTOR [Suspect]
     Active Substance: ROSUVASTATIN CALCIUM
     Indication: Blood cholesterol increased
     Route: 048
     Dates: start: 2016, end: 20220601
  2. CRESTOR [Suspect]
     Active Substance: ROSUVASTATIN CALCIUM
     Indication: Blood cholesterol increased
     Dosage: 10 MG, UNKNOWN (GENERIC)
     Route: 048
     Dates: end: 202211
  3. CRESTOR [Suspect]
     Active Substance: ROSUVASTATIN CALCIUM
     Indication: Blood cholesterol increased
     Dosage: SPLITTING PILLS AND TAKES HALF THE PILL 5MG.
     Route: 048
     Dates: start: 202211

REACTIONS (3)
  - Muscle spasms [Recovered/Resolved]
  - Inability to afford medication [Unknown]
  - Intentional product misuse [Unknown]
